FAERS Safety Report 17882954 (Version 2)
Quarter: 2020Q2

REPORT INFORMATION
  Report Type: Spontaneous
  Country: US (occurrence: US)
  Receive Date: 20200610
  Receipt Date: 20200612
  Transmission Date: 20200714
  Serious: No
  Sender: FDA-Public Use
  Company Number: US-JNJFOC-20200533036

PATIENT
  Age: 8 Month
  Sex: Female
  Weight: 7.26 kg

DRUGS (1)
  1. MOTRIN INFANTS [Suspect]
     Active Substance: IBUPROFEN
     Indication: TEETHING
     Dosage: ABOUT 4 HOURS EARLIER, MOTHER GAVE PATIENT AN UNKNOWN AMOUNT BUT POSSIBLY HALF OF A 1.25ML BUT THE C
     Route: 048
     Dates: start: 20200522

REACTIONS (1)
  - Incorrect dose administered [Unknown]

NARRATIVE: CASE EVENT DATE: 20200522
